FAERS Safety Report 5302727-6 (Version None)
Quarter: 2007Q2

REPORT INFORMATION
  Report Type: 
  Country: None (occurrence: None)
  Receive Date: 20070419
  Receipt Date: 20070407
  Transmission Date: 20071010
  Serious: Yes (Other)
  Sender: FDA-Public Use
  Company Number: MX-PFIZER INC-2007028419

PATIENT
  Sex: Male

DRUGS (1)
  1. CHAMPIX [Suspect]
     Indication: ILL-DEFINED DISORDER
     Route: 048
     Dates: start: 20070404, end: 20070405

REACTIONS (11)
  - ABDOMINAL PAIN [None]
  - DEHYDRATION [None]
  - DIARRHOEA [None]
  - FEELING JITTERY [None]
  - HEADACHE [None]
  - INSOMNIA [None]
  - INTENTIONAL DRUG MISUSE [None]
  - MYALGIA [None]
  - NAUSEA [None]
  - PARANOIA [None]
  - SOMNOLENCE [None]
